FAERS Safety Report 18589159 (Version 1)
Quarter: 2020Q4

REPORT INFORMATION
  Report Type: Spontaneous
  Country: FR (occurrence: FR)
  Receive Date: 20201208
  Receipt Date: 20201208
  Transmission Date: 20210114
  Serious: Yes (Hospitalization)
  Sender: FDA-Public Use
  Company Number: FR-TEVA-2020-FR-1854889

PATIENT
  Age: 88 Year
  Sex: Male

DRUGS (11)
  1. OMEPRAZOLE. [Suspect]
     Active Substance: OMEPRAZOLE
     Indication: PRODUCT USED FOR UNKNOWN INDICATION
     Dosage: 20MILLIGRAM
     Route: 048
     Dates: end: 20201103
  2. AMLODIPINE [Suspect]
     Active Substance: AMLODIPINE BESYLATE
     Indication: PRODUCT USED FOR UNKNOWN INDICATION
     Dosage: 300MILLIGRAM
     Route: 048
     Dates: end: 20201103
  3. PARACETAMOL [Suspect]
     Active Substance: ACETAMINOPHEN
     Indication: PAIN
     Dosage: 1000MILLIGRAM
     Route: 048
     Dates: end: 20201103
  4. FUROSEMIDE. [Suspect]
     Active Substance: FUROSEMIDE
     Indication: CARDIAC FAILURE
     Dosage: 60MILLIGRAM
     Route: 048
  5. METFORMINE [Suspect]
     Active Substance: METFORMIN HYDROCHLORIDE
     Indication: TYPE 2 DIABETES MELLITUS
     Dosage: 1000MILLIGRAM
     Route: 048
     Dates: end: 20201103
  6. DIFFU K [Suspect]
     Active Substance: POTASSIUM CHLORIDE
     Indication: PROPHYLAXIS
     Dosage: 2DOSAGEFORM
     Route: 048
     Dates: end: 20201105
  7. STRUCTUM 500 MG, GELULE [Suspect]
     Active Substance: CHONDROITIN SULFATE SODIUM NOS
     Indication: OSTEOARTHRITIS
     Dosage: 2DOSAGEFORM
     Route: 048
     Dates: end: 20201103
  8. FOSFOMYCINE [Suspect]
     Active Substance: FOSFOMYCIN
     Indication: URINARY TRACT INFECTION
     Dosage: 3GRAM
     Route: 048
  9. ESCITALOPRAM [Suspect]
     Active Substance: ESCITALOPRAM OXALATE
     Indication: PRODUCT USED FOR UNKNOWN INDICATION
     Dosage: 10MILLIGRAM
     Route: 048
     Dates: end: 20201103
  10. FLECTOR [Suspect]
     Active Substance: DICLOFENAC EPOLAMINE
     Indication: PAIN
     Dosage: 3 DOSAGE FORMS DAILY; 3 APPLICATIONS PER DAY
     Route: 003
     Dates: end: 20201103
  11. VALSARTAN. [Suspect]
     Active Substance: VALSARTAN
     Indication: HYPERTENSION
     Dosage: 80MILLIGRAM
     Route: 048
     Dates: end: 20201103

REACTIONS (2)
  - Acute kidney injury [Not Recovered/Not Resolved]
  - Hyponatraemia [Recovered/Resolved]

NARRATIVE: CASE EVENT DATE: 20201102
